FAERS Safety Report 18990554 (Version 1)
Quarter: 2021Q1

REPORT INFORMATION
  Report Type: Spontaneous
  Country: PL (occurrence: PL)
  Receive Date: 20210310
  Receipt Date: 20210310
  Transmission Date: 20210420
  Serious: Yes (Other)
  Sender: FDA-Public Use
  Company Number: PL-ROCHE-2783451

PATIENT
  Age: 58 Year
  Sex: Female
  Weight: 58 kg

DRUGS (2)
  1. HERCEPTIN [Suspect]
     Active Substance: TRASTUZUMAB
     Indication: NEOPLASM MALIGNANT
     Dosage: DOSE: 600, UNIT UNKNOWN
     Route: 058
     Dates: start: 20170525
  2. PACLITAXEL. [Concomitant]
     Active Substance: PACLITAXEL
     Indication: NEOPLASM MALIGNANT
     Route: 042
     Dates: start: 20170525

REACTIONS (3)
  - Liver injury [Recovering/Resolving]
  - Alanine aminotransferase abnormal [Recovering/Resolving]
  - Aspartate aminotransferase abnormal [Recovering/Resolving]

NARRATIVE: CASE EVENT DATE: 20170621
